FAERS Safety Report 16264037 (Version 6)
Quarter: 2020Q2

REPORT INFORMATION
  Report Type: Spontaneous
  Country: NL (occurrence: NL)
  Receive Date: 20190502
  Receipt Date: 20200408
  Transmission Date: 20200713
  Serious: Yes (Other)
  Sender: FDA-Public Use
  Company Number: NL-009507513-1904NLD010657

PATIENT
  Age: 68 Year
  Sex: Male

DRUGS (6)
  1. CLOPIDOGREL [Interacting]
     Active Substance: CLOPIDOGREL BISULFATE
     Dosage: SINCE A FEW MONTHS
  2. IMATINIB MESYLATE. [Interacting]
     Active Substance: IMATINIB MESYLATE
     Indication: CHRONIC MYELOID LEUKAEMIA (IN REMISSION)
     Dosage: UNK
  3. BUMETANIDE. [Concomitant]
     Active Substance: BUMETANIDE
     Dosage: SINCE A FEW MONTHS
  4. SIMVASTATIN. [Suspect]
     Active Substance: SIMVASTATIN
     Dosage: UNK
     Route: 065
  5. ALFACALCIDOL [Interacting]
     Active Substance: ALFACALCIDOL
     Dosage: UNK
  6. IMATINIB MESYLATE. [Interacting]
     Active Substance: IMATINIB MESYLATE
     Dosage: 20 MILLIGRAM

REACTIONS (3)
  - Drug interaction [Recovered/Resolved]
  - Interstitial lung disease [Recovered/Resolved]
  - Organising pneumonia [Recovered/Resolved]
